FAERS Safety Report 24267956 (Version 1)
Quarter: 2024Q3

REPORT INFORMATION
  Report Type: Spontaneous
  Country: ZA (occurrence: ZA)
  Receive Date: 20240830
  Receipt Date: 20240830
  Transmission Date: 20241017
  Serious: Yes (Other)
  Sender: JOHNSON AND JOHNSON
  Company Number: ZA-JNJFOC-20240864046

PATIENT
  Age: 12 Year
  Sex: Male
  Weight: 51 kg

DRUGS (6)
  1. SIMPONI [Suspect]
     Active Substance: GOLIMUMAB
     Indication: Product used for unknown indication
     Dosage: EVERY 28 DAYS
     Route: 058
     Dates: start: 202106, end: 202302
  2. METHOTREXATE [Concomitant]
     Active Substance: METHOTREXATE
     Dosage: ONGOING DMARDS
     Route: 058
     Dates: start: 202203
  3. CHLOROQUINE [Concomitant]
     Active Substance: CHLOROQUINE
     Dosage: DMARDS
     Dates: start: 202203, end: 202310
  4. MELOXICAM [Concomitant]
     Active Substance: MELOXICAM
     Dosage: ONGOING NSAIDS
     Dates: start: 202204, end: 202310
  5. ARCOXIA [Concomitant]
     Active Substance: ETORICOXIB
     Dosage: NSAIDS
     Dates: start: 202203, end: 202204
  6. PREDNISONE [Concomitant]
     Active Substance: PREDNISONE
     Dosage: DMARDS
     Dates: start: 202301, end: 202306

REACTIONS (4)
  - Juvenile idiopathic arthritis [Recovering/Resolving]
  - Oesophageal candidiasis [Unknown]
  - Infection [Unknown]
  - Drug ineffective [Unknown]

NARRATIVE: CASE EVENT DATE: 20230201
